FAERS Safety Report 22040446 (Version 1)
Quarter: 2023Q1

REPORT INFORMATION
  Report Type: Spontaneous
  Country: US (occurrence: None)
  Receive Date: 20230227
  Receipt Date: 20230227
  Transmission Date: 20230417
  Serious: No
  Sender: FDA-Public Use
  Company Number: 2023A030824

PATIENT
  Sex: Male

DRUGS (1)
  1. SYMBICORT [Suspect]
     Active Substance: BUDESONIDE\FORMOTEROL FUMARATE DIHYDRATE
     Indication: Seasonal allergy
     Dosage: 80/4.5 MCG, 120 INHALATION INHALER, TWO PUFFS DAILY AS NEEDED80.0UG AS REQUIRED
     Route: 055

REACTIONS (5)
  - Condition aggravated [Unknown]
  - Product use issue [Unknown]
  - Device use issue [Unknown]
  - Product dose omission issue [Unknown]
  - Device malfunction [Unknown]
